FAERS Safety Report 17241062 (Version 1)
Quarter: 2019Q4

REPORT INFORMATION
  Report Type: Spontaneous
  Country: US (occurrence: US)
  Receive Date: 20191212
  Receipt Date: 20191212
  Transmission Date: 20200122
  Serious: No
  Sender: FDA-Public Use
  Company Number: None

PATIENT
  Sex: Male

DRUGS (1)
  1. LUPRON DEPOT-PED [Suspect]
     Active Substance: LEUPROLIDE ACETATE
     Indication: HYPOPITUITARISM
     Dosage: ?          OTHER FREQUENCY:EVERY25-28DAYS ;?
     Route: 058
     Dates: start: 201909

REACTIONS (1)
  - Insomnia [None]
